FAERS Safety Report 14184061 (Version 1)
Quarter: 2017Q4

REPORT INFORMATION
  Report Type: Other
  Country: MY (occurrence: MY)
  Receive Date: 20171113
  Receipt Date: 20171113
  Transmission Date: 20180321
  Serious: No
  Sender: FDA-Public Use
  Company Number: MY-NEPHRON PHARMACEUTICALS CORPORATION-2033910

PATIENT
  Age: 5 Year
  Sex: Female

DRUGS (1)
  1. IPRATROPIUM BROMIDE AND ALBUTEROL SULFATE [Suspect]
     Active Substance: ALBUTEROL SULFATE\IPRATROPIUM BROMIDE
     Indication: ASTHMA
     Route: 055

REACTIONS (1)
  - Pupils unequal [Unknown]
